FAERS Safety Report 25482672 (Version 1)
Quarter: 2025Q2

REPORT INFORMATION
  Report Type: Spontaneous
  Country: US (occurrence: US)
  Receive Date: 20250626
  Receipt Date: 20250626
  Transmission Date: 20250717
  Serious: Yes (Other)
  Sender: ACCORD
  Company Number: US-Accord-491519

PATIENT
  Age: 32 Year
  Sex: Female

DRUGS (2)
  1. SERTRALINE [Suspect]
     Active Substance: SERTRALINE HYDROCHLORIDE
     Indication: Anxiety
  2. SERTRALINE [Suspect]
     Active Substance: SERTRALINE HYDROCHLORIDE
     Indication: Anxiety
     Dosage: DOSE INCREASED OVER THE COURSE OF 1 YEAR, DOSE WAS TAPERED

REACTIONS (4)
  - Affective disorder [Recovered/Resolved]
  - Behaviour disorder [Recovered/Resolved]
  - Suicidal ideation [Recovered/Resolved]
  - Unmasking of previously unidentified disease [Recovered/Resolved]
